FAERS Safety Report 8576106-2 (Version None)
Quarter: 2012Q3

REPORT INFORMATION
  Report Type: 
  Country: None (occurrence: None)
  Receive Date: 20120724
  Receipt Date: 20120711
  Transmission Date: 20120928
  Serious: Yes (Other)
  Sender: FDA-Public Use
  Company Number: DE-008872

PATIENT
  Age: 81 Year
  Sex: Male

DRUGS (1)
  1. FIRMAGON [Suspect]
     Indication: PROSTATE CANCER
     Dosage: (80 MG  1X/MONTH SUBCUTANEOUS)
     Route: 058
     Dates: start: 20100817, end: 20120626

REACTIONS (2)
  - DRUG ERUPTION [None]
  - PRURITUS [None]
